FAERS Safety Report 17677160 (Version 1)
Quarter: 2020Q2

REPORT INFORMATION
  Report Type: Spontaneous
  Country: US (occurrence: US)
  Receive Date: 20200416
  Receipt Date: 20200416
  Transmission Date: 20200714
  Serious: Yes (Hospitalization, Other)
  Sender: FDA-Public Use
  Company Number: US-PERRIGO-20US005499

PATIENT
  Age: 72 Year
  Sex: Female

DRUGS (9)
  1. OMEPRAZOLE. [Suspect]
     Active Substance: OMEPRAZOLE
     Dosage: 20 MG, QD, BEFORE BREAKFAST
     Route: 048
     Dates: start: 20120919, end: 20170925
  2. PREVACID 24 HR [Suspect]
     Active Substance: LANSOPRAZOLE
     Indication: GASTROOESOPHAGEAL REFLUX DISEASE
     Dosage: 20 MG, QD
     Route: 048
     Dates: start: 20090518, end: 20171231
  3. OMEPRAZOLE. [Suspect]
     Active Substance: OMEPRAZOLE
     Dosage: 20 MG, BID
     Route: 048
     Dates: start: 20130104, end: 20130812
  4. PREVACID [Suspect]
     Active Substance: LANSOPRAZOLE
     Indication: GASTROOESOPHAGEAL REFLUX DISEASE
     Dosage: 30 MG, QD
     Route: 048
     Dates: start: 20030520, end: 20030714
  5. PRILOSEC [Suspect]
     Active Substance: OMEPRAZOLE MAGNESIUM
     Indication: GASTROOESOPHAGEAL REFLUX DISEASE
     Dosage: 20 MG, QD
     Route: 048
     Dates: start: 20030620, end: 20171231
  6. PANTOPRAZOLE SODIUM. [Suspect]
     Active Substance: PANTOPRAZOLE SODIUM
     Indication: GASTROOESOPHAGEAL REFLUX DISEASE
     Dosage: 40 MG, EVERY MORNING
     Route: 048
     Dates: start: 20110714, end: 20111003
  7. OMEPRAZOLE. [Suspect]
     Active Substance: OMEPRAZOLE
     Dosage: 20 MG, QD
     Route: 048
     Dates: start: 20130213, end: 20130605
  8. OMEPRAZOLE. [Suspect]
     Active Substance: OMEPRAZOLE
     Indication: GASTROOESOPHAGEAL REFLUX DISEASE
     Dosage: 40 MG, QD
     Route: 048
     Dates: start: 20120919, end: 20150925
  9. OMEPRAZOLE. [Suspect]
     Active Substance: OMEPRAZOLE
     Dosage: 20 MG, EVERY MORNING
     Route: 048
     Dates: start: 20171214

REACTIONS (23)
  - Hypertensive nephropathy [Unknown]
  - Renal failure [Not Recovered/Not Resolved]
  - Urinary tract disorder [Unknown]
  - Dysuria [Unknown]
  - End stage renal disease [Not Recovered/Not Resolved]
  - Glomerulonephritis membranous [Unknown]
  - Renal disorder [Unknown]
  - Proteinuria [Unknown]
  - Peritoneal dialysis [Unknown]
  - Haemodialysis [Unknown]
  - Renal tubular dysfunction [Unknown]
  - Ureteral disorder [Unknown]
  - Renal impairment [Unknown]
  - Chronic kidney disease [Not Recovered/Not Resolved]
  - Acute kidney injury [Not Recovered/Not Resolved]
  - Nephrotic syndrome [Unknown]
  - Dialysis [Unknown]
  - Pollakiuria [Unknown]
  - Urate nephropathy [Unknown]
  - Nephropathy [Not Recovered/Not Resolved]
  - Nephritis [Unknown]
  - Focal segmental glomerulosclerosis [Unknown]
  - Renal cyst [Unknown]

NARRATIVE: CASE EVENT DATE: 20120913
